FAERS Safety Report 22129776 (Version 2)
Quarter: 2023Q2

REPORT INFORMATION
  Report Type: Spontaneous
  Country: GB (occurrence: GB)
  Receive Date: 20230323
  Receipt Date: 20230403
  Transmission Date: 20230722
  Serious: Yes (Other)
  Sender: FDA-Public Use
  Company Number: GB-AMGEN-GBRSP2022024394

PATIENT

DRUGS (2)
  1. ADALIMUMAB [Suspect]
     Active Substance: ADALIMUMAB
     Indication: Psoriatic arthropathy
     Dosage: UNK
     Route: 065
  2. ADALIMUMAB [Suspect]
     Active Substance: ADALIMUMAB
     Indication: Psoriasis

REACTIONS (27)
  - Psoriatic arthropathy [Unknown]
  - Pneumonia [Unknown]
  - Gastrointestinal disorder [Unknown]
  - General symptom [Unknown]
  - Infestation [Unknown]
  - Nervous system disorder [Unknown]
  - Respiratory disorder [Unknown]
  - Mediastinal disorder [Unknown]
  - Skin disorder [Unknown]
  - Drug level below therapeutic [Unknown]
  - Drug level above therapeutic [Unknown]
  - Surgery [Unknown]
  - Drug specific antibody present [Unknown]
  - Therapy non-responder [Unknown]
  - Infection [Unknown]
  - Pruritus [Unknown]
  - Furuncle [Unknown]
  - Administration site reaction [Unknown]
  - Gastroenteritis [Unknown]
  - Psoriasis [Unknown]
  - Tooth infection [Unknown]
  - Upper respiratory tract infection [Unknown]
  - Nasopharyngitis [Unknown]
  - Lower respiratory tract infection [Unknown]
  - Skin infection [Unknown]
  - Soft tissue infection [Unknown]
  - Urinary tract infection [Unknown]
